FAERS Safety Report 24422108 (Version 1)
Quarter: 2024Q4

REPORT INFORMATION
  Report Type: Report from Study
  Country: FR (occurrence: None)
  Receive Date: 20241010
  Receipt Date: 20241010
  Transmission Date: 20250114
  Serious: Yes (Death, Other)
  Sender: ADIENNE PHARMA & BIOTECH
  Company Number: FR-ADIENNEP-2024AD000802

PATIENT
  Age: 3 Year
  Sex: Male

DRUGS (5)
  1. THIOTEPA [Suspect]
     Active Substance: THIOTEPA
     Indication: Allogenic stem cell transplantation
  2. CYCLOSPORINE [Suspect]
     Active Substance: CYCLOSPORINE
     Indication: Allogenic stem cell transplantation
  3. BUSULFAN [Suspect]
     Active Substance: BUSULFAN
     Indication: Allogenic stem cell transplantation
  4. ETOPOSIDE [Suspect]
     Active Substance: ETOPOSIDE
     Indication: Allogenic stem cell transplantation
  5. FLUCONAZOLE [Suspect]
     Active Substance: FLUCONAZOLE
     Indication: Allogenic stem cell transplantation

REACTIONS (3)
  - Plasma cell myeloma [Fatal]
  - Epstein-Barr virus infection [Unknown]
  - Post transplant lymphoproliferative disorder [Fatal]
